FAERS Safety Report 24020575 (Version 1)
Quarter: 2024Q2

REPORT INFORMATION
  Report Type: Report from Study
  Country: US (occurrence: US)
  Receive Date: 20240627
  Receipt Date: 20240627
  Transmission Date: 20240715
  Serious: Yes (Other)
  Sender: FDA-Public Use
  Company Number: US-BAUSCH-BL-2023-011890

PATIENT
  Age: 70 Year
  Sex: Male

DRUGS (2)
  1. APRISO [Suspect]
     Active Substance: MESALAMINE
     Indication: Product used for unknown indication
     Dosage: DOSE: 90 DAYS
     Route: 048
     Dates: end: 202308
  2. APRISO [Suspect]
     Active Substance: MESALAMINE
     Route: 048
     Dates: end: 2024

REACTIONS (3)
  - Haemorrhage [Not Recovered/Not Resolved]
  - Gastrointestinal disorder [Not Recovered/Not Resolved]
  - Therapy interrupted [Unknown]

NARRATIVE: CASE EVENT DATE: 20230801
